FAERS Safety Report 9574718 (Version 2)
Quarter: 2013Q4

REPORT INFORMATION
  Report Type: Spontaneous
  Country: US (occurrence: US)
  Receive Date: 20131001
  Receipt Date: 20131001
  Transmission Date: 20140711
  Serious: No
  Sender: FDA-Public Use
  Company Number: US-PURDUE-USA-2012-0084525

PATIENT
  Sex: Male

DRUGS (3)
  1. BUTRANS [Suspect]
     Indication: NECK PAIN
     Dosage: 20 MCG/HR, UNK
     Route: 062
     Dates: start: 201203
  2. BUTRANS [Suspect]
     Dosage: 10 MCG/HR, UNK
     Route: 062
  3. NORCO [Concomitant]
     Indication: NECK PAIN
     Dosage: 10MG/325MG 1 TABLET, BID
     Route: 048
     Dates: start: 2006

REACTIONS (4)
  - Drug effect decreased [Not Recovered/Not Resolved]
  - Application site pruritus [Recovered/Resolved]
  - Drug ineffective [Unknown]
  - Therapeutic response delayed [Unknown]
